FAERS Safety Report 4269910-2 (Version None)
Quarter: 2004Q1

REPORT INFORMATION
  Report Type: 
  Country: None (occurrence: None)
  Receive Date: 20040112
  Receipt Date: 20031229
  Transmission Date: 20041129
  Serious: Yes (Hospitalization)
  Sender: FDA-Public Use
  Company Number: US-JNJFOC-20031205594

PATIENT
  Age: 79 Year
  Sex: Female

DRUGS (8)
  1. INFLIXIMAB (INFLIXIMAB, RECOMBINANT) LYOPHILIZED POWDER [Suspect]
     Indication: RHEUMATOID ARTHRITIS
     Dosage: INTRAVENOUS
     Route: 042
     Dates: start: 20010411
  2. SYNTHROID [Concomitant]
  3. METHOTREXATE [Concomitant]
  4. FOLIC ACID [Concomitant]
  5. PRAVACHOL [Concomitant]
  6. ASPIRIN [Concomitant]
  7. CITRACAL (CALCIUM CITRATE) [Concomitant]
  8. CENTRUM SILVER MULTIVITAMIN (CENTRUM SILVER) [Concomitant]

REACTIONS (4)
  - ATRIAL FIBRILLATION [None]
  - CARDIOMEGALY [None]
  - HEART RATE INCREASED [None]
  - PALPITATIONS [None]
